FAERS Safety Report 18211380 (Version 3)
Quarter: 2020Q3

REPORT INFORMATION
  Report Type: Report from Study
  Country: DE (occurrence: DE)
  Receive Date: 20200831
  Receipt Date: 20200922
  Transmission Date: 20201103
  Serious: Yes (Death, Hospitalization)
  Sender: FDA-Public Use
  Company Number: DE-BEH-2020121269

PATIENT
  Age: 82 Year
  Sex: Male
  Weight: 82 kg

DRUGS (17)
  1. PHENPROGAMMA [Concomitant]
     Active Substance: PHENPROCOUMON
     Dosage: UNK, ACCORDING TO PLAN
  2. VITAMIN B12 [Concomitant]
     Active Substance: CYANOCOBALAMIN
     Dosage: 1 MILLIGRAM, QD
     Route: 065
  3. PANTOZOL [Concomitant]
     Active Substance: PANTOPRAZOLE SODIUM
     Dosage: 40 MILLIGRAM, QD
     Route: 065
  4. PRIVIGEN [Suspect]
     Active Substance: HUMAN IMMUNOGLOBULIN G
     Dosage: 10 GRAM, TOT
     Route: 042
     Dates: start: 20191220, end: 20191220
  5. KALINOR [POTASSIUM CHLORIDE] [Concomitant]
     Active Substance: POTASSIUM CHLORIDE
     Dosage: UNK
     Route: 065
  6. VIGANTOLETTEN [Concomitant]
     Active Substance: CHOLECALCIFEROL
     Dosage: 1000 INTERNATIONAL UNIT, QD
     Route: 065
  7. MARCUMAR [Concomitant]
     Active Substance: PHENPROCOUMON
     Indication: INTERNATIONAL NORMALISED RATIO
     Dosage: UNK, PRN
     Route: 065
  8. PRIVIGEN [Suspect]
     Active Substance: HUMAN IMMUNOGLOBULIN G
     Dosage: 10 GRAM, TOT
     Route: 042
     Dates: start: 20191025, end: 20191025
  9. VENLAFAXIN [Concomitant]
     Active Substance: VENLAFAXINE HYDROCHLORIDE
     Route: 065
  10. SITAGLIPTIN [Concomitant]
     Active Substance: SITAGLIPTIN
     Dosage: 50 MILLIGRAM, QD
     Route: 065
  11. PRIVIGEN [Suspect]
     Active Substance: HUMAN IMMUNOGLOBULIN G
     Indication: HUMORAL IMMUNE DEFECT
     Dosage: 10 GRAM, TOT
     Route: 042
     Dates: start: 20190927, end: 20190927
  12. PRIVIGEN [Suspect]
     Active Substance: HUMAN IMMUNOGLOBULIN G
     Dosage: 10 GRAM, TOT
     Route: 042
     Dates: start: 20191122, end: 20191122
  13. KALINOR [POTASSIUM CHLORIDE] [Concomitant]
     Active Substance: POTASSIUM CHLORIDE
     Dosage: 1 DOSAGE FORM, QD
     Route: 065
  14. COLECALCIFEROL [Concomitant]
     Active Substance: CHOLECALCIFEROL
     Dosage: 1000 INTERNATIONAL UNIT, QD
  15. TORSEMIDE. [Concomitant]
     Active Substance: TORSEMIDE
     Dosage: 50 MILLIGRAM, QD
     Route: 065
  16. JANUVIA [Concomitant]
     Active Substance: SITAGLIPTIN PHOSPHATE
     Dosage: 50 MILLIGRAM, QD
     Route: 065
  17. BISOPROLOL [Concomitant]
     Active Substance: BISOPROLOL
     Dosage: 5 MILLIGRAM, QD
     Route: 065

REACTIONS (17)
  - Overdose [Recovering/Resolving]
  - Chronic kidney disease [Recovering/Resolving]
  - Urinary tract infection [Recovering/Resolving]
  - Pneumonia [Fatal]
  - Fatigue [Unknown]
  - Leukocytosis [Unknown]
  - Pulmonary congestion [Fatal]
  - Anticoagulation drug level above therapeutic [Recovering/Resolving]
  - General physical health deterioration [Unknown]
  - Respiratory failure [Unknown]
  - General physical health deterioration [Recovering/Resolving]
  - Cyanosis [Unknown]
  - Epistaxis [Unknown]
  - Dementia [Unknown]
  - Hypertension [Recovering/Resolving]
  - International normalised ratio abnormal [Recovering/Resolving]
  - Thrombocytopenia [Unknown]

NARRATIVE: CASE EVENT DATE: 202001
